FAERS Safety Report 9835154 (Version 1)
Quarter: 2014Q1

REPORT INFORMATION
  Report Type: Spontaneous
  Country: US (occurrence: US)
  Receive Date: 20140122
  Receipt Date: 20140122
  Transmission Date: 20141002
  Serious: No
  Sender: FDA-Public Use
  Company Number: US-BRISTOL-MYERS SQUIBB COMPANY-19833110

PATIENT
  Age: 76 Year
  Sex: Female
  Weight: 72.56 kg

DRUGS (2)
  1. ELIQUIS [Suspect]
     Indication: ATRIAL FIBRILLATION
     Dates: start: 20131114
  2. ARMOUR THYROID [Concomitant]

REACTIONS (7)
  - Chest discomfort [Unknown]
  - Headache [Unknown]
  - Irritability [Unknown]
  - Abdominal pain upper [Unknown]
  - Skin odour abnormal [Unknown]
  - Ear pain [Unknown]
  - Neck pain [Unknown]
